FAERS Safety Report 8887751 (Version 2)
Quarter: 2012Q4

REPORT INFORMATION
  Report Type: 
  Country: JP (occurrence: JP)
  Receive Date: 20121106
  Receipt Date: 20121127
  Transmission Date: 20130627
  Serious: Yes (Hospitalization)
  Sender: FDA-Public Use
  Company Number: JP-ELI_LILLY_AND_COMPANY-JP201210007702

PATIENT
  Age: 54 Year
  Sex: Female

DRUGS (2)
  1. GEMZAR [Suspect]
     Indication: BREAST CANCER
     Dosage: 1000 mg, other
     Route: 042
  2. WARFARIN POTASSIUM [Concomitant]
     Indication: PULMONARY EMBOLISM
     Dosage: 2.5 mg, UNK

REACTIONS (3)
  - Melaena [Recovered/Resolved]
  - Intra-abdominal haemorrhage [Recovered/Resolved]
  - Drug interaction [Recovered/Resolved]
